FAERS Safety Report 16743942 (Version 1)
Quarter: 2019Q3

REPORT INFORMATION
  Report Type: Spontaneous
  Country: GB (occurrence: GB)
  Receive Date: 20190827
  Receipt Date: 20190827
  Transmission Date: 20191005
  Serious: Yes (Hospitalization)
  Sender: FDA-Public Use
  Company Number: GB-ASTRAZENECA-2019SF18454

PATIENT
  Age: 87 Year
  Sex: Female
  Weight: 70.8 kg

DRUGS (9)
  1. BISOPROLOL [Concomitant]
     Active Substance: BISOPROLOL
  2. CANDESARTAN. [Concomitant]
     Active Substance: CANDESARTAN
  3. ATORVASTATIN [Concomitant]
     Active Substance: ATORVASTATIN
  4. ACETYLSALICYLIC ACID [Concomitant]
     Active Substance: ASPIRIN
  5. TICAGRELOR. [Suspect]
     Active Substance: TICAGRELOR
     Indication: ACUTE MYOCARDIAL INFARCTION
     Route: 048
     Dates: start: 20180801, end: 20190604
  6. MOVIPREP [Concomitant]
     Active Substance: ASCORBIC ACID\POLYETHYLENE GLYCOL 3350\POTASSIUM CHLORIDE\SODIUM ASCORBATE\SODIUM CHLORIDE\SODIUM SULFATE
  7. PARACETAMOL [Concomitant]
     Active Substance: ACETAMINOPHEN
  8. LATANOPROST. [Concomitant]
     Active Substance: LATANOPROST
  9. FERRIC CARBOXYMALTOSE [Concomitant]
     Active Substance: FERRIC CARBOXYMALTOSE

REACTIONS (7)
  - Decreased appetite [Unknown]
  - Dyspnoea [Unknown]
  - Upper gastrointestinal haemorrhage [Recovering/Resolving]
  - Iron deficiency anaemia [Unknown]
  - Abnormal loss of weight [Unknown]
  - Joint swelling [Unknown]
  - Vaginal haemorrhage [Unknown]

NARRATIVE: CASE EVENT DATE: 20190603
